FAERS Safety Report 19529629 (Version 3)
Quarter: 2021Q3

REPORT INFORMATION
  Report Type: Spontaneous
  Country: CN (occurrence: CN)
  Receive Date: 20210713
  Receipt Date: 20210803
  Transmission Date: 20211014
  Serious: Yes (Hospitalization, Other)
  Sender: FDA-Public Use
  Company Number: CN-B.I. PHARMACEUTICALS,INC./RIDGEFIELD-2021-BI-114259

PATIENT
  Age: 17 Year
  Sex: Female
  Weight: 50 kg

DRUGS (4)
  1. MOBIC [Suspect]
     Active Substance: MELOXICAM
     Route: 048
     Dates: start: 20210615
  2. MOBIC [Suspect]
     Active Substance: MELOXICAM
     Indication: ANKYLOSING SPONDYLITIS
     Dosage: 7.5 MG/BID IN THE MORNING AND EVENING.
     Route: 048
     Dates: start: 202104
  3. SULFASALAZINE. [Suspect]
     Active Substance: SULFASALAZINE
     Indication: ANKYLOSING SPONDYLITIS
     Dosage: FORM OF ADMIN: ENTERIC?COATED TABLETS
     Route: 048
  4. MOBIC [Suspect]
     Active Substance: MELOXICAM
     Route: 048

REACTIONS (10)
  - Therapeutic product effect decreased [Recovered/Resolved]
  - Blood uric acid decreased [Unknown]
  - Intentional product misuse [Unknown]
  - Mouth ulceration [Recovered/Resolved]
  - Lymphadenopathy [Recovering/Resolving]
  - Immunodeficiency [Recovered/Resolved]
  - White blood cell count decreased [Unknown]
  - Alanine aminotransferase decreased [Unknown]
  - Dermatitis allergic [Unknown]
  - Lymphocyte count decreased [Unknown]

NARRATIVE: CASE EVENT DATE: 2021
